FAERS Safety Report 8358568-9 (Version None)
Quarter: 2012Q2

REPORT INFORMATION
  Report Type: 
  Country: None (occurrence: None)
  Receive Date: 20120514
  Receipt Date: 20111118
  Transmission Date: 20120825
  Serious: Yes (Other)
  Sender: FDA-Public Use
  Company Number: IT-TEVA-337291ISR

PATIENT
  Sex: Male
  Weight: 75 kg

DRUGS (4)
  1. TRISENOX [Suspect]
     Route: 042
     Dates: start: 20111229
  2. TRISENOX [Suspect]
     Dosage: 5 MILLIGRAM;
     Route: 042
     Dates: start: 20111105, end: 20111113
  3. ATRACURIUM BESYLATE [Suspect]
     Route: 048
     Dates: start: 20111201
  4. ATRACURIUM BESYLATE [Suspect]
     Route: 048
     Dates: start: 20111105, end: 20111112

REACTIONS (3)
  - ASPARTATE AMINOTRANSFERASE INCREASED [None]
  - TRANSAMINASES INCREASED [None]
  - WHITE BLOOD CELL COUNT INCREASED [None]
